FAERS Safety Report 8375168-5 (Version None)
Quarter: 2012Q2

REPORT INFORMATION
  Report Type: 
  Country: None (occurrence: None)
  Receive Date: 20120521
  Receipt Date: 20120508
  Transmission Date: 20120825
  Serious: Yes (Other)
  Sender: FDA-Public Use
  Company Number: DE-MYLANLABS-2012S1010096

PATIENT
  Age: 33 Year
  Sex: Female

DRUGS (4)
  1. ASTONIN-H [Concomitant]
     Indication: ADRENOGENITAL SYNDROME
     Route: 048
     Dates: start: 20100224, end: 20100712
  2. LAMOTRIGINE [Suspect]
     Indication: EPILEPSY
     Route: 048
     Dates: start: 20100224
  3. DEXAMETHASONE [Concomitant]
     Indication: ADRENOGENITAL SYNDROME
     Route: 048
  4. HYDROCORTISONE [Concomitant]
     Indication: ADRENOGENITAL SYNDROME
     Route: 048
     Dates: start: 20100224

REACTIONS (4)
  - GASTROINTESTINAL INFECTION [None]
  - BLOOD POTASSIUM DECREASED [None]
  - MATERNAL EXPOSURE DURING PREGNANCY [None]
  - VAGINAL HAEMORRHAGE [None]
